FAERS Safety Report 23196584 (Version 1)
Quarter: 2023Q4

REPORT INFORMATION
  Report Type: Spontaneous
  Country: US (occurrence: US)
  Receive Date: 20231117
  Receipt Date: 20231117
  Transmission Date: 20240109
  Serious: Yes (Other)
  Sender: FDA-Public Use
  Company Number: US-PFIZER INC-202300333395

PATIENT
  Age: 73 Year
  Sex: Female
  Weight: 99.79 kg

DRUGS (5)
  1. ALTACE [Suspect]
     Active Substance: RAMIPRIL
     Indication: Hypertension
     Dosage: 10 MG
  2. ALTACE [Suspect]
     Active Substance: RAMIPRIL
     Dosage: TWO 5 IN THE MORNING, TWO 5 IN THE EVENING
     Route: 048
     Dates: start: 202211
  3. ELIQUIS [Concomitant]
     Active Substance: APIXABAN
     Dosage: 5 MG, 2X/DAY
  4. MULTAQ [Concomitant]
     Active Substance: DRONEDARONE
     Dosage: 400 MG, 2X/DAY
  5. CARVEDILOL [Concomitant]
     Active Substance: CARVEDILOL

REACTIONS (6)
  - Suspected counterfeit product [Unknown]
  - Poor quality product administered [Unknown]
  - Blood pressure increased [Unknown]
  - Dizziness [Unknown]
  - Chest discomfort [Unknown]
  - Illness [Unknown]
